FAERS Safety Report 8716213 (Version 2)
Quarter: 2013Q4

REPORT INFORMATION
  Report Type: Report from Study
  Country: JP (occurrence: JP)
  Receive Date: 20120809
  Receipt Date: 20131107
  Transmission Date: 20140711
  Serious: Yes (Hospitalization)
  Sender: FDA-Public Use
  Company Number: JP-009507513-1207JPN007418

PATIENT
  Age: 61 Year
  Sex: Female
  Weight: 58 kg

DRUGS (15)
  1. PEGINTRON [Suspect]
     Indication: HEPATITIS C
     Dosage: 1.5MCG/KG/WEEK
     Route: 058
     Dates: start: 20120510
  2. REBETOL [Suspect]
     Indication: HEPATITIS C
     Route: 048
     Dates: start: 20120510, end: 20120527
  3. REBETOL [Suspect]
     Indication: HEPATITIS C
     Route: 048
     Dates: start: 20120528, end: 20120603
  4. REBETOL [Suspect]
     Route: 048
     Dates: start: 20120604
  5. TELAVIC [Suspect]
     Indication: HEPATITIS C
     Route: 048
     Dates: start: 20120510, end: 20120603
  6. TELAVIC [Suspect]
     Route: 048
     Dates: start: 20120605
  7. AMLODIN OD [Concomitant]
     Indication: HYPERTENSION
     Route: 048
  8. GASTER D [Concomitant]
     Indication: PROPHYLAXIS
     Route: 048
  9. BAYASPIRIN [Concomitant]
     Indication: CEREBRAL INFARCTION
     Route: 048
  10. JUVELA [Concomitant]
     Indication: PROPHYLAXIS
     Route: 048
  11. LAXOBERON [Concomitant]
     Indication: PROPHYLAXIS
     Dosage: IT IS SINGLE USE DURING TEN DROPS/DAY.
     Route: 048
  12. EVAMYL [Concomitant]
     Indication: PROPHYLAXIS
     Dosage: IT IS SINGLE USE DURING 1MG/DAY.
     Route: 048
  13. PURSENNID (SENNOSIDES) [Concomitant]
     Indication: PROPHYLAXIS
     Route: 048
  14. LOXONIN [Concomitant]
     Indication: PROPHYLAXIS
     Dosage: IT IS SINGLE USE DURING 60MG/DAY.
     Route: 048
     Dates: start: 20120523
  15. MUCOSTA [Concomitant]
     Indication: PROPHYLAXIS
     Dosage: IT IS SINGLE USE DURING 100MG/DAY.
     Route: 048
     Dates: start: 20120523

REACTIONS (4)
  - Vomiting [Recovering/Resolving]
  - Dizziness [Recovering/Resolving]
  - Headache [Recovering/Resolving]
  - Hypoaesthesia [Recovering/Resolving]
